FAERS Safety Report 6653587-2 (Version None)
Quarter: 2010Q1

REPORT INFORMATION
  Report Type: 
  Country: None (occurrence: None)
  Receive Date: 20100326
  Receipt Date: 20100312
  Transmission Date: 20100710
  Serious: No
  Sender: FDA-Public Use
  Company Number: US-B.I. PHARMACEUTICALS,INC./RIDGEFIELD-2010-BP-02928BP

PATIENT
  Age: 75 Year
  Sex: Female

DRUGS (6)
  1. MICARDIS [Suspect]
     Indication: HYPERTENSION
     Dosage: 160 MG
     Route: 048
     Dates: start: 20100201
  2. MICARDIS [Suspect]
     Dosage: 80 MG
     Route: 048
     Dates: start: 20090501, end: 20100201
  3. MICARDIS [Suspect]
     Dosage: 40 MG
     Route: 048
     Dates: start: 20090301, end: 20090501
  4. NORVASC [Concomitant]
     Indication: HYPERTENSION
  5. DIURETIC [Concomitant]
     Indication: HYPERTENSION
  6. BONE MEDICATION [Concomitant]
     Indication: OSTEOPOROSIS

REACTIONS (6)
  - BLOOD PRESSURE INADEQUATELY CONTROLLED [None]
  - BLOOD PRESSURE INCREASED [None]
  - CONTUSION [None]
  - FOOT FRACTURE [None]
  - MUSCLE STRAIN [None]
  - OVERDOSE [None]
